FAERS Safety Report 17865701 (Version 7)
Quarter: 2022Q2

REPORT INFORMATION
  Report Type: Report from Study
  Country: US (occurrence: US)
  Receive Date: 20200605
  Receipt Date: 20220421
  Transmission Date: 20220721
  Serious: Yes (Other)
  Sender: FDA-Public Use
  Company Number: US-NOVARTISPH-NVSC2020US157657

PATIENT
  Sex: Female

DRUGS (5)
  1. GILENYA [Suspect]
     Active Substance: FINGOLIMOD HYDROCHLORIDE
     Indication: Multiple sclerosis
     Dosage: 0.5 MG, QD
     Route: 048
  2. GILENYA [Suspect]
     Active Substance: FINGOLIMOD HYDROCHLORIDE
     Dosage: 0.5 MG, QD
     Route: 048
  3. GILENYA [Suspect]
     Active Substance: FINGOLIMOD HYDROCHLORIDE
     Dosage: 0.5 MG, QD
     Route: 048
  4. GILENYA [Suspect]
     Active Substance: FINGOLIMOD HYDROCHLORIDE
     Dosage: 0.5 MG, QD
     Route: 048
  5. GILENYA [Suspect]
     Active Substance: FINGOLIMOD HYDROCHLORIDE
     Dosage: 0.5 MG, QD
     Route: 048

REACTIONS (19)
  - Syncope [Unknown]
  - Depression [Unknown]
  - Pain [Unknown]
  - Amnesia [Unknown]
  - Anxiety [Unknown]
  - Photophobia [Unknown]
  - Confusional state [Unknown]
  - Vitreous floaters [Unknown]
  - Intraocular pressure increased [Unknown]
  - Stress [Unknown]
  - Dry eye [Unknown]
  - Hypoaesthesia [Not Recovered/Not Resolved]
  - Burning sensation [Unknown]
  - Visual impairment [Unknown]
  - Frustration tolerance decreased [Unknown]
  - Dizziness [Unknown]
  - Fatigue [Unknown]
  - Weight decreased [Unknown]
  - Product dose omission issue [Unknown]
